FAERS Safety Report 18904547 (Version 1)
Quarter: 2021Q1

REPORT INFORMATION
  Report Type: Spontaneous
  Country: ES (occurrence: ES)
  Receive Date: 20210217
  Receipt Date: 20210217
  Transmission Date: 20210420
  Serious: Yes (Other)
  Sender: FDA-Public Use
  Company Number: NVSC2021ES029042

PATIENT
  Age: 44 Year
  Sex: Female
  Weight: 58 kg

DRUGS (3)
  1. DESLORATADIN SANDOZ [Concomitant]
     Indication: HYPERSENSITIVITY
     Dosage: 1 COMPRIMIDO DIARIO ANTES DE DORMIR,  20 COMPRIMIDOS
     Route: 065
  2. NAPROXENO RATIOPHARM [Concomitant]
     Indication: HEADACHE
     Dosage: 1 COMPRIMIDO CADA 8 HORAS
     Route: 065
     Dates: start: 20190310
  3. MONTELUKAST SANDOZ 10 MG ? FILMTABLETTEN [Suspect]
     Active Substance: MONTELUKAST SODIUM
     Indication: ASTHMA
     Dosage: 10 MG, QD UN COMPRIMIDO ANTES DE DORMIR, 28 COMPRIMIDOS
     Route: 048
     Dates: start: 20160421

REACTIONS (9)
  - Dysarthria [Recovering/Resolving]
  - Aggression [Recovering/Resolving]
  - Depression [Recovering/Resolving]
  - Insomnia [Unknown]
  - Hallucination, auditory [Recovering/Resolving]
  - Mental impairment [Recovering/Resolving]
  - Disorientation [Recovering/Resolving]
  - Depersonalisation/derealisation disorder [Recovering/Resolving]
  - Restlessness [Recovering/Resolving]

NARRATIVE: CASE EVENT DATE: 20210124
